FAERS Safety Report 7319064-0 (Version None)
Quarter: 2011Q1

REPORT INFORMATION
  Report Type: 
  Country: None (occurrence: None)
  Receive Date: 20110228
  Receipt Date: 20110216
  Transmission Date: 20110831
  Serious: Yes (Hospitalization)
  Sender: FDA-Public Use
  Company Number: JP-AMGEN-JPNCT2011001530

PATIENT
  Age: 70 Year
  Sex: Male
  Weight: 73 kg

DRUGS (13)
  1. CORTICOSTEROIDS [Concomitant]
     Indication: PROPHYLAXIS
     Route: 065
  2. FLUOROURACIL [Suspect]
     Route: 041
     Dates: start: 20101006, end: 20101111
  3. HIRUDOID [Concomitant]
     Route: 062
  4. KINDAVATE [Concomitant]
     Route: 062
  5. RINDERON-VG [Concomitant]
     Route: 062
  6. OPSO [Concomitant]
     Route: 048
  7. PREDONINE [Concomitant]
     Route: 048
  8. ALESION [Concomitant]
     Route: 048
  9. FENTOS TAPE [Concomitant]
     Route: 062
  10. FLUOROURACIL [Suspect]
     Indication: COLORECTAL CANCER
     Route: 040
     Dates: start: 20101006, end: 20101111
  11. PANITUMUMAB [Suspect]
     Indication: COLORECTAL CANCER
     Dosage: 6 MG/KG, Q2WK
     Route: 041
     Dates: start: 20101006, end: 20101228
  12. IRINOTECAN HCL [Suspect]
     Indication: COLORECTAL CANCER
     Route: 041
     Dates: start: 20101006, end: 20101111
  13. CALCIUM LEVOFOLINATE [Suspect]
     Indication: COLORECTAL CANCER
     Route: 041
     Dates: start: 20101006, end: 20101111

REACTIONS (2)
  - FEBRILE NEUTROPENIA [None]
  - HERPES ZOSTER [None]
